FAERS Safety Report 26039955 (Version 2)
Quarter: 2025Q4

REPORT INFORMATION
  Report Type: Spontaneous
  Country: GB (occurrence: GB)
  Receive Date: 20251113
  Receipt Date: 20251128
  Transmission Date: 20260117
  Serious: Yes (Other)
  Sender: ASTELLAS
  Company Number: GB-ASTELLAS-2025-AER-061859

PATIENT
  Age: 3 Decade
  Sex: Male

DRUGS (6)
  1. TACROLIMUS [Suspect]
     Active Substance: TACROLIMUS
     Indication: Renal transplant
     Route: 048
     Dates: start: 202404, end: 2024
  2. TACROLIMUS [Suspect]
     Active Substance: TACROLIMUS
     Dosage: DOSE WAS ADJUSTED IN RESPONSE TO DRUG BLOOD LEVELS, WHICH PREDOMINANTLY REMAINED WITHIN STANDARD THE
     Route: 048
     Dates: start: 2024, end: 202412
  3. TACROLIMUS [Suspect]
     Active Substance: TACROLIMUS
     Dosage: REDUCED TO 3 MG MIDI AND 2 MG NOCTE
     Route: 048
     Dates: start: 202412, end: 202501
  4. TACROLIMUS [Suspect]
     Active Substance: TACROLIMUS
     Dosage: REDUCED
     Route: 048
     Dates: start: 202501
  5. MYCOPHENOLATE MOFETIL [Concomitant]
     Active Substance: MYCOPHENOLATE MOFETIL
     Indication: Renal transplant
     Route: 065
     Dates: start: 202404
  6. MYCOPHENOLATE MOFETIL [Concomitant]
     Active Substance: MYCOPHENOLATE MOFETIL
     Route: 065

REACTIONS (2)
  - Calcineurin inhibitor induced pain syndrome [Recovered/Resolved]
  - Musculoskeletal pain [Recovered/Resolved]

NARRATIVE: CASE EVENT DATE: 20240901
